FAERS Safety Report 24931620 (Version 2)
Quarter: 2025Q1

REPORT INFORMATION
  Report Type: Spontaneous
  Country: JP (occurrence: JP)
  Receive Date: 20250205
  Receipt Date: 20250306
  Transmission Date: 20250408
  Serious: Yes (Death)
  Sender: NOVARTIS
  Company Number: JP-002147023-NVSJ2025JP001622

PATIENT

DRUGS (1)
  1. KESIMPTA [Suspect]
     Active Substance: OFATUMUMAB
     Indication: Multiple sclerosis
     Route: 058

REACTIONS (1)
  - Coronavirus infection [Fatal]

NARRATIVE: CASE EVENT DATE: 20240101
